FAERS Safety Report 24100717 (Version 8)
Quarter: 2025Q2

REPORT INFORMATION
  Report Type: Spontaneous
  Country: US (occurrence: US)
  Receive Date: 20240717
  Receipt Date: 20250520
  Transmission Date: 20250717
  Serious: Yes (Other)
  Sender: CHATTEM
  Company Number: US-SA-2022SA239467

PATIENT
  Sex: Male
  Weight: 90 kg

DRUGS (1)
  1. GOLD BOND ORIGINAL STRENGTH [Suspect]
     Active Substance: MENTHOL
     Indication: Product used for unknown indication
     Route: 065

REACTIONS (5)
  - Pleural mesothelioma malignant [Not Recovered/Not Resolved]
  - Epithelioid mesothelioma [Not Recovered/Not Resolved]
  - Deep vein thrombosis [Not Recovered/Not Resolved]
  - Cancer pain [Recovered/Resolved]
  - Exposure to chemical pollution [Unknown]

NARRATIVE: CASE EVENT DATE: 20211116
